FAERS Safety Report 8880825 (Version 2)
Quarter: 2012Q4

REPORT INFORMATION
  Report Type: 
  Country: US (occurrence: US)
  Receive Date: 20121101
  Receipt Date: 20121226
  Transmission Date: 20130627
  Serious: No
  Sender: FDA-Public Use
  Company Number: US-VERTEX PHARMACEUTICAL INC.-2012-023788

PATIENT
  Sex: Female
  Weight: 72 kg

DRUGS (4)
  1. INCIVEK [Suspect]
     Indication: HEPATITIS C
     Dosage: 2 DF, UNK
     Route: 048
     Dates: start: 20121007
  2. RIBAVIRIN [Suspect]
     Indication: HEPATITIS C
     Dosage: 3pills/2pills, bid
     Route: 048
     Dates: start: 20121007
  3. PEGASYS [Suspect]
     Indication: HEPATITIS C
     Dosage: 180 ?g, qw
     Route: 058
     Dates: start: 20121007
  4. EFFEXOR [Concomitant]
     Indication: DEPRESSION
     Dosage: 150 mg, qd
     Route: 048

REACTIONS (5)
  - Haemorrhoidal haemorrhage [Not Recovered/Not Resolved]
  - Rectal haemorrhage [Not Recovered/Not Resolved]
  - Proctalgia [Not Recovered/Not Resolved]
  - Diarrhoea [Not Recovered/Not Resolved]
  - Anal fissure [Not Recovered/Not Resolved]
